FAERS Safety Report 10945052 (Version 1)
Quarter: 2015Q1

REPORT INFORMATION
  Report Type: Spontaneous
  Country: US (occurrence: None)
  Receive Date: 20150212
  Receipt Date: 20150212
  Transmission Date: 20150721
  Serious: No
  Sender: FDA-Public Use
  Company Number: TPA2011A02725

PATIENT
  Age: 77 Year
  Sex: Male
  Weight: 104.33 kg

DRUGS (7)
  1. VERAPAMIL ER (VERAPAMIL) [Concomitant]
  2. LEVOTHYROXINE (LEVOTHYROXINE) [Concomitant]
     Active Substance: LEVOTHYROXINE
  3. TRIAMTERENE/HCTZ (HYDROCHLOROTHIAZIDE, TRIAMTERENE) [Concomitant]
  4. UNKNOWN ANTIBIOTICS (ANTIBIOTICS) [Concomitant]
  5. DIOVAN [Concomitant]
     Active Substance: VALSARTAN
  6. ULORIC [Suspect]
     Active Substance: FEBUXOSTAT
     Indication: GOUT
     Route: 048
     Dates: start: 20110426, end: 20110427
  7. LOVASTATIN (LOVASTATIN) [Concomitant]
     Active Substance: LOVASTATIN

REACTIONS (1)
  - Dysgeusia [None]

NARRATIVE: CASE EVENT DATE: 20110524
